FAERS Safety Report 4852220-X (Version None)
Quarter: 2005Q4

REPORT INFORMATION
  Report Type: 
  Country: None (occurrence: None)
  Receive Date: 20051212
  Receipt Date: 20051212
  Transmission Date: 20060501
  Serious: Yes (Hospitalization, Other)
  Sender: FDA-Public Use
  Company Number: None

PATIENT
  Age: 12 Year
  Sex: Female
  Weight: 92 kg

DRUGS (1)
  1. STRATTERA [Suspect]

REACTIONS (1)
  - DIABETES MELLITUS INSULIN-DEPENDENT [None]
